FAERS Safety Report 17581703 (Version 1)
Quarter: 2020Q1

REPORT INFORMATION
  Report Type: Spontaneous
  Country: US (occurrence: US)
  Receive Date: 20200324
  Receipt Date: 20200324
  Transmission Date: 20200409
  Serious: Yes (Death)
  Sender: FDA-Public Use
  Company Number: None

PATIENT
  Sex: Female

DRUGS (17)
  1. HYDROCHLOROT [Concomitant]
     Active Substance: HYDROCHLOROTHIAZIDE
  2. LINZESS [Concomitant]
     Active Substance: LINACLOTIDE
  3. TAMOXIFEN [Concomitant]
     Active Substance: TAMOXIFEN
  4. TAMOXIFEN [Concomitant]
     Active Substance: TAMOXIFEN
  5. SENEXON-S [Concomitant]
     Active Substance: DOCUSATE SODIUM\SENNOSIDES A AND B
  6. POLYETH GLYC [Concomitant]
     Active Substance: POLYETHYLENE GLYCOLS
  7. SERTRALINE [Concomitant]
     Active Substance: SERTRALINE HYDROCHLORIDE
  8. TRAZODONE [Concomitant]
     Active Substance: TRAZODONE HYDROCHLORIDE
  9. RAMIPRIL. [Concomitant]
     Active Substance: RAMIPRIL
  10. SIMVASTATIN. [Concomitant]
     Active Substance: SIMVASTATIN
  11. DEXAMETHASON [Concomitant]
     Active Substance: DEXAMETHASONE
  12. IBRANCE [Suspect]
     Active Substance: PALBOCICLIB
     Indication: BREAST CANCER FEMALE
     Dosage: ?          OTHER FREQUENCY:QD1-21OF 28D CYCLE;?
     Route: 048
     Dates: start: 20200317
  13. OMEPRAZOLE. [Concomitant]
     Active Substance: OMEPRAZOLE
  14. TRAMADOL. [Concomitant]
     Active Substance: TRAMADOL
  15. ONDANSETRON [Concomitant]
     Active Substance: ONDANSETRON
  16. FUROSEMIDE. [Concomitant]
     Active Substance: FUROSEMIDE
  17. LORAZEPAM. [Concomitant]
     Active Substance: LORAZEPAM

REACTIONS (1)
  - Death [None]
